FAERS Safety Report 5728178-8 (Version None)
Quarter: 2008Q2

REPORT INFORMATION
  Report Type: 
  Country: None (occurrence: None)
  Receive Date: 20080430
  Receipt Date: 20080414
  Transmission Date: 20081010
  Serious: Yes (Hospitalization)
  Sender: FDA-Public Use
  Company Number: DSA_31744_2008

PATIENT
  Age: 88 Year
  Sex: Female

DRUGS (6)
  1. ENALAPRIL MALEATE [Suspect]
     Indication: DRUG USE FOR UNKNOWN INDICATION
     Dosage: (10 MG)
  2. GUAIFENESIN / CODEINE [Suspect]
     Indication: COUGH
     Dosage: (DF)
  3. ALENDRONATE SODIUM [Concomitant]
  4. CALCIUM [Concomitant]
  5. ACETAMINOPHEN [Concomitant]
  6. LEVOFLOXACIN [Concomitant]

REACTIONS (6)
  - CLOSTRIDIAL INFECTION [None]
  - CONFUSIONAL STATE [None]
  - DELIRIUM [None]
  - DRUG PRESCRIBING ERROR [None]
  - LETHARGY [None]
  - PNEUMONIA ASPIRATION [None]
